FAERS Safety Report 14638562 (Version 1)
Quarter: 2018Q1

REPORT INFORMATION
  Report Type: Spontaneous
  Country: US (occurrence: US)
  Receive Date: 20180314
  Receipt Date: 20180314
  Transmission Date: 20180509
  Serious: Yes (Other)
  Sender: FDA-Public Use
  Company Number: US-009507513-1803USA003219

PATIENT
  Sex: Female
  Weight: 61.22 kg

DRUGS (1)
  1. NEXPLANON [Suspect]
     Active Substance: ETONOGESTREL
     Indication: CONTRACEPTION
     Dosage: 1 DF, EVERY 3 YEARS
     Route: 059
     Dates: start: 20150522

REACTIONS (6)
  - Mental impairment [Unknown]
  - Pain [Unknown]
  - Dizziness [Unknown]
  - Abdominal pain [Unknown]
  - Menstruation irregular [Unknown]
  - Adverse event [Unknown]
